FAERS Safety Report 23440301 (Version 1)
Quarter: 2024Q1

REPORT INFORMATION
  Report Type: Spontaneous
  Country: KR (occurrence: KR)
  Receive Date: 20240124
  Receipt Date: 20240124
  Transmission Date: 20240410
  Serious: Yes (Hospitalization)
  Sender: FDA-Public Use
  Company Number: KR-KYOWAKIRIN-2024KK000693

PATIENT
  Age: 33 Year
  Sex: Female

DRUGS (1)
  1. NEUPOGEN [Suspect]
     Active Substance: FILGRASTIM
     Indication: Product used for unknown indication
     Dosage: 0.7 MILLILITER
     Route: 065
     Dates: start: 20211106, end: 20211227

REACTIONS (2)
  - Coccydynia [Recovered/Resolved]
  - Back pain [Recovered/Resolved]
